FAERS Safety Report 6103746-2 (Version None)
Quarter: 2009Q1

REPORT INFORMATION
  Report Type: 
  Country: None (occurrence: None)
  Receive Date: 20090305
  Receipt Date: 20090302
  Transmission Date: 20090719
  Serious: Yes (Death)
  Sender: FDA-Public Use
  Company Number: PHHY2009MX06660

PATIENT
  Age: 78 Year
  Sex: Female

DRUGS (4)
  1. EXFORGE [Suspect]
     Indication: HYPERTENSION
     Dosage: 1 DF, QD
     Route: 048
     Dates: start: 20080601
  2. CAPTOPRIL [Concomitant]
     Indication: HYPERTENSION
  3. ISOSORBIDE [Concomitant]
     Indication: CARDIAC VALVE DISEASE
  4. LANOXIN [Concomitant]
     Indication: CARDIAC VALVE DISEASE

REACTIONS (1)
  - MYOCARDIAL INFARCTION [None]
